FAERS Safety Report 9775272 (Version 2)
Quarter: 2013Q4

REPORT INFORMATION
  Report Type: Spontaneous
  Country: US (occurrence: US)
  Receive Date: 20131220
  Receipt Date: 20131220
  Transmission Date: 20140711
  Serious: No
  Sender: FDA-Public Use
  Company Number: US-GALDERMA-US13003133

PATIENT
  Age: 60 Year
  Sex: Female

DRUGS (3)
  1. MIRVASO (BRIMONIDINE) TOPICAL GEL, 0.33% [Suspect]
     Indication: ROSACEA
     Route: 061
     Dates: start: 20130930, end: 20131003
  2. HYDROCHLOROTHIAZIDE [Suspect]
  3. METOPROLOL [Concomitant]

REACTIONS (4)
  - Rebound effect [Recovered/Resolved]
  - Face oedema [Recovered/Resolved]
  - Contusion [Recovered/Resolved]
  - Skin haemorrhage [Recovered/Resolved]
